FAERS Safety Report 15115004 (Version 1)
Quarter: 2018Q3

REPORT INFORMATION
  Report Type: Spontaneous
  Country: AU (occurrence: AU)
  Receive Date: 20180706
  Receipt Date: 20180706
  Transmission Date: 20181010
  Serious: Yes (Other)
  Sender: FDA-Public Use
  Company Number: AU-FERRINGPH-2018FE03408

PATIENT

DRUGS (6)
  1. SYNAREL [Concomitant]
     Active Substance: NAFARELIN ACETATE
     Indication: IN VITRO FERTILISATION
  2. GONAL?F [Concomitant]
     Active Substance: FOLLITROPIN
     Indication: IN VITRO FERTILISATION
  3. PUREGON                            /01348901/ [Suspect]
     Active Substance: FOLLITROPIN
     Indication: IN VITRO FERTILISATION
     Dosage: UNK, DAILY
     Route: 065
     Dates: start: 20161104, end: 20171102
  4. MENOPUR [Suspect]
     Active Substance: FOLLITROPIN\LUTEINIZING HORMONE
     Indication: IN VITRO FERTILISATION
     Dosage: UNK
     Route: 065
     Dates: start: 20170309, end: 20180206
  5. PREDNISONE. [Concomitant]
     Active Substance: PREDNISONE
     Indication: IN VITRO FERTILISATION
  6. SAIZEN [Concomitant]
     Active Substance: SOMATROPIN
     Indication: IN VITRO FERTILISATION

REACTIONS (1)
  - Neoplasm [Not Recovered/Not Resolved]

NARRATIVE: CASE EVENT DATE: 20180131
